FAERS Safety Report 8809733 (Version 2)
Quarter: 2013Q1

REPORT INFORMATION
  Report Type: Spontaneous
  Country: US (occurrence: US)
  Receive Date: 20120926
  Receipt Date: 20130327
  Transmission Date: 20140127
  Serious: No
  Sender: FDA-Public Use
  Company Number: US-ASTRAZENECA-2012SE71527

PATIENT
  Age: 65 Year
  Sex: Female

DRUGS (3)
  1. ATACAND [Suspect]
     Indication: HYPERTENSION
     Dosage: GENERIC
     Route: 048
  2. ATACAND [Suspect]
     Indication: HYPERTENSION
     Route: 048
  3. ATACAND HCT [Suspect]
     Route: 048

REACTIONS (4)
  - Adverse drug reaction [Unknown]
  - Malaise [Unknown]
  - Hypertension [Unknown]
  - Drug ineffective [Unknown]
